FAERS Safety Report 6901072-2 (Version None)
Quarter: 2010Q3

REPORT INFORMATION
  Report Type: 
  Country: None (occurrence: None)
  Receive Date: 20100803
  Receipt Date: 20100723
  Transmission Date: 20110219
  Serious: Yes (Other)
  Sender: FDA-Public Use
  Company Number: NL-ROCHE-716602

PATIENT
  Age: 75 Year
  Sex: Male

DRUGS (4)
  1. CAPECITABINE [Suspect]
     Indication: GASTRIC CANCER
     Dosage: RECEIVED 2 CYCLES, FIRST WITH CISPLATIN AND EPIRUBICIN, SECOND WITH OXALIPLATIN AND EPIRUBICIN
     Route: 065
  2. EPIRUBICIN [Suspect]
     Indication: GASTRIC CANCER
     Dosage: RECEIVED 2 CYCLES, FIRST WITH CISPLATIN AND CAPECITABINE, SECOND WITH OXALIPLATIN AND CAPECITABINE
     Route: 065
  3. CISPLATIN [Suspect]
     Indication: GASTRIC CANCER
     Dosage: RECEIVED ONE CYCLE WITH CAPECITABINE AND EPIRUBICINE.
     Route: 065
  4. OXALIPLATIN [Suspect]
     Indication: GASTRIC CANCER
     Dosage: RECEIVED ONE CYCLE WITH CAPECITABINE AND EPIRUBICINE.
     Route: 065

REACTIONS (3)
  - DIARRHOEA [None]
  - ELECTROLYTE IMBALANCE [None]
  - NEPHROPATHY TOXIC [None]
